FAERS Safety Report 14573061 (Version 1)
Quarter: 2018Q1

REPORT INFORMATION
  Report Type: Spontaneous
  Country: NL (occurrence: NL)
  Receive Date: 20180226
  Receipt Date: 20180226
  Transmission Date: 20180509
  Serious: Yes (Hospitalization, Other)
  Sender: FDA-Public Use
  Company Number: NL-ALLERGAN-1809500US

PATIENT
  Age: 67 Year
  Sex: Female
  Weight: 75 kg

DRUGS (2)
  1. MERCAPTOPURINE. [Suspect]
     Active Substance: MERCAPTOPURINE
     Indication: COLITIS ULCERATIVE
     Dosage: 100 MG, QD (1.3 MG/ KG)
     Route: 065
  2. MESALAZINE UNK [Suspect]
     Active Substance: MESALAMINE
     Indication: COLITIS ULCERATIVE
     Route: 065

REACTIONS (5)
  - Leukopenia [Recovered/Resolved]
  - Anaemia [Recovering/Resolving]
  - Irritable bowel syndrome [Unknown]
  - Bone marrow failure [Unknown]
  - Pyrexia [Unknown]
